FAERS Safety Report 7809702-8 (Version None)
Quarter: 2011Q4

REPORT INFORMATION
  Report Type: 
  Country: None (occurrence: None)
  Receive Date: 20111012
  Receipt Date: 20111006
  Transmission Date: 20120403
  Serious: Yes (Death, Life-Threatening, Hospitalization, Other)
  Sender: FDA-Public Use
  Company Number: DE-GLAXOSMITHKLINE-B0564293A

PATIENT
  Sex: Male

DRUGS (14)
  1. MELPHALAN HYDROCHLORIDE [Suspect]
     Indication: MULTIPLE MYELOMA
     Dosage: .25MGK PER DAY
     Dates: start: 20090129, end: 20090202
  2. KALIUM [Concomitant]
     Indication: HYPOKALAEMIA
     Dosage: 2G TWICE PER DAY
     Route: 048
     Dates: start: 20090127, end: 20090211
  3. LEVOTHYROXINE SODIUM [Concomitant]
     Indication: HYPOTHYROIDISM
     Dosage: 25UG PER DAY
     Route: 048
     Dates: start: 20081220, end: 20090216
  4. TAMSULOSIN HCL [Concomitant]
     Indication: PROPHYLAXIS
     Dosage: .4MG PER DAY
     Route: 048
     Dates: start: 20090129, end: 20090211
  5. ACETYLSALICYLIC ACID [Concomitant]
     Indication: THROMBOSIS PROPHYLAXIS
     Dosage: 100MG PER DAY
     Route: 048
     Dates: start: 20090129, end: 20090208
  6. THALIDOMIDE [Suspect]
     Indication: MULTIPLE MYELOMA
     Dosage: 200MG PER DAY
     Route: 048
     Dates: start: 20090129, end: 20090209
  7. PREDNISONE [Suspect]
     Indication: MULTIPLE MYELOMA
     Dates: start: 20090129, end: 20090201
  8. ALLOPURINOL [Concomitant]
     Indication: HYPOURICAEMIA
     Dosage: 300MG PER DAY
     Route: 048
     Dates: start: 20090130, end: 20090201
  9. TRAMADOL HCL [Concomitant]
     Indication: PAIN
     Dosage: 100MG TWICE PER DAY
     Route: 048
     Dates: start: 20090128, end: 20090208
  10. PANTOPRAZOLE [Concomitant]
     Indication: GASTRITIS
     Dosage: 40MG PER DAY
     Route: 048
     Dates: start: 20081220, end: 20090216
  11. AMPHOTERICIN B [Concomitant]
     Indication: PROPHYLAXIS
     Dosage: 100MG TWICE PER DAY
     Route: 048
     Dates: start: 20090130, end: 20090201
  12. METAMIZOLE [Concomitant]
     Indication: PAIN
     Dosage: 500MG FOUR TIMES PER DAY
     Route: 048
     Dates: start: 20081220, end: 20090216
  13. NADROPARIN [Concomitant]
     Indication: THROMBOSIS PROPHYLAXIS
     Dosage: .3ML PER DAY
     Route: 058
  14. LACTULOSE [Concomitant]
     Indication: CONSTIPATION PROPHYLAXIS
     Dosage: 3.34MG PER DAY
     Dates: start: 20090128, end: 20090216

REACTIONS (12)
  - HEPATITIS B [None]
  - NAUSEA [None]
  - DIZZINESS [None]
  - FEBRILE NEUTROPENIA [None]
  - SEPSIS [None]
  - COUGH [None]
  - ACUTE RESPIRATORY DISTRESS SYNDROME [None]
  - MULTI-ORGAN FAILURE [None]
  - PNEUMONIA [None]
  - COMA HEPATIC [None]
  - BONE PAIN [None]
  - RESPIRATORY FAILURE [None]
